FAERS Safety Report 21341433 (Version 1)
Quarter: 2022Q3

REPORT INFORMATION
  Report Type: Report from Study
  Country: EG (occurrence: EG)
  Receive Date: 20220916
  Receipt Date: 20220916
  Transmission Date: 20221026
  Serious: Yes (Other)
  Sender: FDA-Public Use
  Company Number: EG-NOVARTISPH-NVSC2022EG206538

PATIENT
  Age: 52 Year
  Sex: Female

DRUGS (18)
  1. KISQALI [Suspect]
     Active Substance: RIBOCICLIB
     Indication: Breast cancer metastatic
     Dosage: 3 DOSAGE FORM, QD
     Route: 048
  2. KISQALI [Suspect]
     Active Substance: RIBOCICLIB
     Dosage: 2 DOSAGE FORM, QD
     Route: 048
     Dates: start: 202003, end: 202006
  3. AFINITOR [Suspect]
     Active Substance: EVEROLIMUS
     Indication: Breast cancer metastatic
     Dosage: UNK
     Route: 065
  4. AFINITOR [Suspect]
     Active Substance: EVEROLIMUS
     Dosage: 10 MG, QD
     Route: 048
     Dates: start: 202011
  5. IBRANCE [Concomitant]
     Active Substance: PALBOCICLIB
     Indication: Product used for unknown indication
     Dosage: UNK (STOPPED DUE TO COMPLICATION)
     Route: 065
     Dates: start: 2019
  6. FASLODEX [Concomitant]
     Active Substance: FULVESTRANT
     Indication: Breast cancer metastatic
     Dosage: UNK ( FIRST 3 DOSES WERE EVERY 15 DAYS AND THEN 2 IM  AMPOULE EVERY MONTH)
     Route: 065
     Dates: start: 2017, end: 2019
  7. FASLODEX [Concomitant]
     Active Substance: FULVESTRANT
     Indication: Metastases to bone
  8. URSODIOL [Concomitant]
     Active Substance: URSODIOL
     Indication: Product used for unknown indication
     Dosage: UNK
     Route: 065
  9. LISTERINE ORIGINAL [Concomitant]
     Active Substance: EUCALYPTOL\MENTHOL\METHYL SALICYLATE\THYMOL
     Indication: Mouth ulceration
     Dosage: UNK
     Route: 065
  10. ORAZONE [Concomitant]
     Indication: Mouth ulceration
     Dosage: UNK
     Route: 065
  11. CARBOPLATIN [Concomitant]
     Active Substance: CARBOPLATIN
     Indication: Breast cancer metastatic
     Dosage: UNK
     Route: 065
     Dates: start: 201509
  12. CARBOPLATIN [Concomitant]
     Active Substance: CARBOPLATIN
     Indication: Metastases to bone
  13. TAXOTERE [Concomitant]
     Active Substance: DOCETAXEL
     Indication: Breast cancer metastatic
     Dosage: UNK
     Route: 065
     Dates: start: 201509
  14. TAXOTERE [Concomitant]
     Active Substance: DOCETAXEL
     Indication: Metastases to bone
  15. EXEMESTANE [Concomitant]
     Active Substance: EXEMESTANE
     Indication: Breast cancer metastatic
     Dosage: UNK
     Route: 065
     Dates: start: 201512, end: 2016
  16. EXEMESTANE [Concomitant]
     Active Substance: EXEMESTANE
     Indication: Metastases to bone
  17. TAMOXIFEN [Concomitant]
     Active Substance: TAMOXIFEN
     Indication: Product used for unknown indication
     Dosage: UNK (FOR MORE 5 YEARS)
     Route: 065
  18. ZOLADEX [Concomitant]
     Active Substance: GOSERELIN ACETATE
     Indication: Product used for unknown indication
     Dosage: UNK (FOR 2 YEARS)
     Route: 065

REACTIONS (10)
  - Carbohydrate antigen 15-3 increased [Not Recovered/Not Resolved]
  - Hepatotoxicity [Recovered/Resolved]
  - Hypersensitivity [Not Recovered/Not Resolved]
  - Metastases to spine [Unknown]
  - Metastases to bone [Unknown]
  - Pruritus [Not Recovered/Not Resolved]
  - Breast cancer metastatic [Not Recovered/Not Resolved]
  - Malignant neoplasm progression [Not Recovered/Not Resolved]
  - Drug ineffective [Recovered/Resolved]
  - Therapy non-responder [Recovered/Resolved]

NARRATIVE: CASE EVENT DATE: 20200301
